FAERS Safety Report 6033299-9 (Version None)
Quarter: 2009Q1

REPORT INFORMATION
  Report Type: 
  Country: None (occurrence: None)
  Receive Date: 20090109
  Receipt Date: 20090107
  Transmission Date: 20090719
  Serious: Yes (Hospitalization)
  Sender: FDA-Public Use
  Company Number: JP-BRISTOL-MYERS SQUIBB COMPANY-14455182

PATIENT
  Age: 68 Year
  Sex: Male
  Weight: 58 kg

DRUGS (11)
  1. ABATACEPT [Suspect]
     Indication: RHEUMATOID ARTHRITIS
     Dosage: ALSO TAKEN FROM 14FEB-04JUL07
     Route: 041
     Dates: start: 20071003
  2. RHEUMATREX [Suspect]
     Indication: RHEUMATOID ARTHRITIS
     Dosage: CAP
     Route: 048
     Dates: start: 20051130, end: 20081219
  3. MEDROL [Suspect]
     Indication: RHEUMATOID ARTHRITIS
     Dosage: TAB
     Route: 048
     Dates: start: 20050518
  4. LOXONIN [Concomitant]
     Indication: RHEUMATOID ARTHRITIS
     Dosage: TAB
     Route: 048
     Dates: end: 20081224
  5. TAKEPRON [Concomitant]
     Indication: PROPHYLAXIS AGAINST GASTROINTESTINAL ULCER
     Dosage: TAB
     Route: 048
     Dates: start: 20041104, end: 20081224
  6. SIMVASTATIN [Concomitant]
     Indication: HYPERLIPIDAEMIA
     Route: 048
     Dates: end: 20081224
  7. INSULIN [Concomitant]
     Indication: TYPE 1 DIABETES MELLITUS
     Route: 058
     Dates: end: 20081225
  8. DIOVAN [Concomitant]
     Indication: HYPERTENSION
     Dosage: TAB
     Route: 048
     Dates: start: 20070309
  9. NATRIX [Concomitant]
     Indication: HYPERTENSION
     Dosage: TAB
     Route: 048
     Dates: start: 20070406
  10. ISODINE [Concomitant]
     Indication: INFECTION PROPHYLAXIS
     Dosage: MOUTH WASH
     Route: 002
     Dates: start: 20080611, end: 20081224
  11. MOHRUS [Concomitant]
     Indication: RHEUMATOID ARTHRITIS
     Dosage: ROUTE ODT
     Dates: start: 20080202, end: 20081224

REACTIONS (1)
  - APPENDICITIS [None]
